FAERS Safety Report 8847132 (Version 1)
Quarter: 2012Q4

REPORT INFORMATION
  Report Type: Spontaneous
  Country: JP (occurrence: None)
  Receive Date: 20121016
  Receipt Date: 20121016
  Transmission Date: 20130627
  Serious: Yes (Life-Threatening, Hospitalization)
  Sender: FDA-Public Use
  Company Number: US-2012-10934

PATIENT
  Age: 72 Year
  Sex: Male
  Weight: 49.2 kg

DRUGS (5)
  1. CILOSTAZOL [Suspect]
  2. ATENOLOL [Suspect]
  3. AMLODIPINE (AMLODIPINE BESILATE) [Concomitant]
  4. DOXAZOSIN (DOXAZOSIN MESILATE) [Concomitant]
  5. INSULIN (INSULIN ZINC SUSPENSION) [Concomitant]

REACTIONS (3)
  - Sinus arrhythmia [None]
  - Cardiac arrest [None]
  - Bradycardia [None]
